FAERS Safety Report 10863358 (Version 1)
Quarter: 2015Q1

REPORT INFORMATION
  Report Type: Spontaneous
  Country: US (occurrence: US)
  Receive Date: 20150224
  Receipt Date: 20150224
  Transmission Date: 20150721
  Serious: No
  Sender: FDA-Public Use
  Company Number: US-009507513-1502USA009130

PATIENT
  Age: 45 Year
  Sex: Male

DRUGS (6)
  1. EPZICOM [Concomitant]
     Active Substance: ABACAVIR SULFATE\LAMIVUDINE
  2. VITAMIN D [Concomitant]
     Active Substance: CHOLECALCIFEROL
  3. COZAAR [Concomitant]
     Active Substance: LOSARTAN POTASSIUM
     Route: 048
  4. OMEGA-3 MARINE TRIGLYCERIDES [Concomitant]
     Active Substance: FISH OIL
     Dosage: UNK
  5. ISENTRESS [Suspect]
     Active Substance: RALTEGRAVIR POTASSIUM
     Indication: HIV INFECTION
     Dosage: 400 MG, BID
     Route: 048
     Dates: start: 201311, end: 20140424
  6. ATORVASTATIN [Concomitant]
     Active Substance: ATORVASTATIN

REACTIONS (5)
  - Glycosylated haemoglobin increased [Recovering/Resolving]
  - Pollakiuria [Unknown]
  - Blood glucose increased [Recovering/Resolving]
  - Insulin C-peptide increased [Recovered/Resolved]
  - Thirst [Unknown]

NARRATIVE: CASE EVENT DATE: 2014
